FAERS Safety Report 19041763 (Version 6)
Quarter: 2021Q3

REPORT INFORMATION
  Report Type: Report from Study
  Country: US (occurrence: US)
  Receive Date: 20210322
  Receipt Date: 20210712
  Transmission Date: 20211014
  Serious: Yes (Other)
  Sender: FDA-Public Use
  Company Number: NVSC2021US058892

PATIENT
  Sex: Female

DRUGS (1)
  1. PIQRAY [Suspect]
     Active Substance: ALPELISIB
     Indication: BREAST CANCER
     Dosage: 200 MG, QD
     Route: 048
     Dates: end: 20210614

REACTIONS (5)
  - Second primary malignancy [Unknown]
  - Tumour marker increased [Unknown]
  - Pain in extremity [Unknown]
  - Hypersomnia [Unknown]
  - Hepatic cancer [Unknown]
